FAERS Safety Report 8496934-1 (Version None)
Quarter: 2012Q3

REPORT INFORMATION
  Report Type: 
  Country: None (occurrence: None)
  Receive Date: 20120709
  Receipt Date: 20120628
  Transmission Date: 20120928
  Serious: Yes (Other)
  Sender: FDA-Public Use
  Company Number: CHPA2012US013010

PATIENT
  Age: 64 Year
  Sex: Female

DRUGS (3)
  1. VOLTAREN [Suspect]
     Indication: PARKINSON'S DISEASE
     Dosage: 4 G, TID
     Route: 061
  2. DRUG THERAPY NOS [Concomitant]
  3. REGLAN [Suspect]
     Indication: CHEMOTHERAPY
     Dosage: UNK, UNK

REACTIONS (9)
  - PARKINSON'S DISEASE [None]
  - PAIN [None]
  - TARDIVE DYSKINESIA [None]
  - DRUG ADMINISTERED AT INAPPROPRIATE SITE [None]
  - BURSITIS [None]
  - THERAPEUTIC RESPONSE UNEXPECTED [None]
  - MALAISE [None]
  - OFF LABEL USE [None]
  - ASTHENIA [None]
